FAERS Safety Report 5188740-0 (Version None)
Quarter: 2006Q4

REPORT INFORMATION
  Report Type: 
  Country: None (occurrence: None)
  Receive Date: 20061214
  Receipt Date: 20061204
  Transmission Date: 20070319
  Serious: Yes (Hospitalization, Other)
  Sender: FDA-Public Use
  Company Number: 2006BI010491

PATIENT
  Age: 58 Year
  Sex: Male
  Weight: 97.5234 kg

DRUGS (4)
  1. AVONEX [Suspect]
     Indication: MULTIPLE SCLEROSIS
     Dates: start: 19980101, end: 20001201
  2. AVONEX [Suspect]
     Indication: MULTIPLE SCLEROSIS
     Dosage: 30 UG;QW;IM
     Route: 030
     Dates: start: 20060828
  3. BACLOFEN [Concomitant]
  4. AMANTADINE HCL [Concomitant]

REACTIONS (11)
  - BLADDER DISORDER [None]
  - CONTRACTED BLADDER [None]
  - CYSTOSTOMY [None]
  - ERECTILE DYSFUNCTION [None]
  - INFLUENZA LIKE ILLNESS [None]
  - PROSTATE CANCER [None]
  - SCAR [None]
  - URETHRAL DISORDER [None]
  - URINARY BLADDER EXCISION [None]
  - URINARY INCONTINENCE [None]
  - UROSTOMY COMPLICATION [None]
